FAERS Safety Report 13061617 (Version 1)
Quarter: 2016Q4

REPORT INFORMATION
  Report Type: Spontaneous
  Country: US (occurrence: US)
  Receive Date: 20161226
  Receipt Date: 20161226
  Transmission Date: 20170207
  Serious: No
  Sender: FDA-Public Use
  Company Number: US-NOVEN PHARMACEUTICALS, INC.-US2016000966

PATIENT

DRUGS (6)
  1. MINIVELLE [Suspect]
     Active Substance: ESTRADIOL
     Dosage: CUTTING 0.1 MG PATCH INTO HALF, UNKNOWN
     Route: 062
     Dates: start: 201603, end: 2016
  2. VITAMIN D [Concomitant]
     Active Substance: CHOLECALCIFEROL
  3. CALCIUM [Concomitant]
     Active Substance: CALCIUM
  4. MINIVELLE [Suspect]
     Active Substance: ESTRADIOL
     Indication: HYSTERECTOMY
     Dosage: 0.1 MG, UNKNOWN
     Route: 062
     Dates: start: 201603, end: 201603
  5. MINIVELLE [Suspect]
     Active Substance: ESTRADIOL
     Dosage: 0.1 MG, UNKNOWN
     Route: 062
     Dates: start: 2016, end: 20160505
  6. POTASSIUM CITRATE. [Concomitant]
     Active Substance: POTASSIUM CITRATE
     Indication: NEPHROLITHIASIS

REACTIONS (14)
  - Depressed mood [Not Recovered/Not Resolved]
  - Off label use [Unknown]
  - Lymphadenopathy [Not Recovered/Not Resolved]
  - Gallbladder disorder [Not Recovered/Not Resolved]
  - Pain [Not Recovered/Not Resolved]
  - Crying [Unknown]
  - Fatigue [Not Recovered/Not Resolved]
  - Therapy cessation [Not Recovered/Not Resolved]
  - Anxiety [Not Recovered/Not Resolved]
  - Migraine [Not Recovered/Not Resolved]
  - Dyspepsia [Not Recovered/Not Resolved]
  - Emotional disorder [Unknown]
  - Wrong technique in product usage process [Recovered/Resolved]
  - Blood oestrogen increased [Unknown]

NARRATIVE: CASE EVENT DATE: 2016
